FAERS Safety Report 5646583-5 (Version None)
Quarter: 2008Q1

REPORT INFORMATION
  Report Type: 
  Country: None (occurrence: None)
  Receive Date: 20080228
  Receipt Date: 20080228
  Transmission Date: 20080703
  Serious: Yes (Hospitalization)
  Sender: FDA-Public Use
  Company Number: None

PATIENT
  Sex: Female
  Weight: 99.7913 kg

DRUGS (3)
  1. LAMICTAL [Suspect]
     Dosage: PO  (THERAPY DATES: PRIOR TO ER VISIT)
     Route: 048
  2. EFFEXOR [Concomitant]
  3. LOTREL [Concomitant]

REACTIONS (3)
  - ERYTHEMA [None]
  - PRURITUS GENERALISED [None]
  - RASH [None]
